FAERS Safety Report 7048455-0 (Version None)
Quarter: 2010Q4

REPORT INFORMATION
  Report Type: 
  Country: None (occurrence: None)
  Receive Date: 20101015
  Receipt Date: 20101006
  Transmission Date: 20110411
  Serious: Yes (Death, Other)
  Sender: FDA-Public Use
  Company Number: SI-GENENTECH-307802

PATIENT
  Age: 67 Year
  Sex: Male

DRUGS (3)
  1. MABTHERA [Suspect]
     Indication: B-CELL LYMPHOMA
     Dosage: 500 MG, UNK
     Route: 042
     Dates: start: 19990101
  2. MABTHERA [Suspect]
     Dosage: 500 MG, UNK
     Route: 042
     Dates: start: 20051201, end: 20060701
  3. MABTHERA [Suspect]
     Dosage: 500 MG, Q3M
     Route: 042
     Dates: end: 20091028

REACTIONS (2)
  - NEUTROPENIA [None]
  - SEPSIS [None]
